FAERS Safety Report 4600478-4 (Version None)
Quarter: 2005Q1

REPORT INFORMATION
  Report Type: 
  Country: None (occurrence: None)
  Receive Date: 20050307
  Receipt Date: 20050218
  Transmission Date: 20050727
  Serious: Yes (Other)
  Sender: FDA-Public Use
  Company Number: 20050008073

PATIENT
  Age: 40 Year
  Sex: Male
  Weight: 65 kg

DRUGS (1)
  1. VIREAD [Suspect]
     Dosage: 300 MG, 2 IN 1 D
     Dates: start: 20050101

REACTIONS (3)
  - FANCONI SYNDROME ACQUIRED [None]
  - MEDICATION ERROR [None]
  - OVERDOSE [None]
